FAERS Safety Report 6997298-2 (Version None)
Quarter: 2010Q3

REPORT INFORMATION
  Report Type: 
  Country: None (occurrence: None)
  Receive Date: 20100918
  Receipt Date: 20091005
  Transmission Date: 20110219
  Serious: No
  Sender: FDA-Public Use
  Company Number: US-WYE-H11444909

PATIENT
  Sex: Female

DRUGS (2)
  1. PRISTIQ [Suspect]
     Indication: DEPRESSION
     Route: 048
     Dates: start: 20090928
  2. ETHANOL [Interacting]
     Dosage: TWO ALCOHOLIC BEVERAGES
     Route: 048

REACTIONS (2)
  - ALCOHOL INTERACTION [None]
  - VOMITING [None]
